FAERS Safety Report 16665071 (Version 1)
Quarter: 2019Q3

REPORT INFORMATION
  Report Type: Spontaneous
  Country: US (occurrence: US)
  Receive Date: 20190803
  Receipt Date: 20190803
  Transmission Date: 20191004
  Serious: Yes (Other)
  Sender: FDA-Public Use
  Company Number: US-ACCORD-072879

PATIENT
  Age: 70 Year
  Sex: Female
  Weight: 84.37 kg

DRUGS (5)
  1. PERJETA [Concomitant]
     Active Substance: PERTUZUMAB
  2. HERCEPTIN [Concomitant]
     Active Substance: TRASTUZUMAB
  3. DOCETAXEL ACCORD [Suspect]
     Active Substance: DOCETAXEL
     Indication: BREAST CANCER
     Dates: start: 20140731, end: 20141113
  4. PARAPLATIN [Suspect]
     Active Substance: CARBOPLATIN
     Indication: BREAST CANCER
     Dates: start: 20140731, end: 20141113
  5. ASPIRIN. [Concomitant]
     Active Substance: ASPIRIN

REACTIONS (1)
  - Alopecia [Not Recovered/Not Resolved]

NARRATIVE: CASE EVENT DATE: 201505
